FAERS Safety Report 4339418-4 (Version None)
Quarter: 2004Q2

REPORT INFORMATION
  Report Type: 
  Country: None (occurrence: None)
  Receive Date: 20040415
  Receipt Date: 20040407
  Transmission Date: 20050107
  Serious: Yes (Hospitalization)
  Sender: FDA-Public Use
  Company Number: PHRM2004FR01483

PATIENT
  Age: 60 Year
  Sex: Female

DRUGS (4)
  1. TEGRETOL [Suspect]
     Indication: EPILEPSY
     Dosage: 800 MG/DAY
     Route: 048
     Dates: start: 19930101, end: 20040203
  2. VALPROIC ACID [Concomitant]
     Route: 048
  3. ALDACTONE [Concomitant]
     Route: 048
  4. FUNGIZONE [Concomitant]
     Indication: MYCOBACTERIAL INFECTION
     Route: 065

REACTIONS (9)
  - ABDOMINAL PAIN [None]
  - AGEUSIA [None]
  - CONSTIPATION [None]
  - DIFFICULTY IN WALKING [None]
  - FUNGAL INFECTION [None]
  - HYPOAESTHESIA [None]
  - MENINGITIS [None]
  - PARESIS [None]
  - SWELLING FACE [None]
